FAERS Safety Report 25025304 (Version 2)
Quarter: 2025Q1

REPORT INFORMATION
  Report Type: Spontaneous
  Country: US (occurrence: US)
  Receive Date: 20250228
  Receipt Date: 20250327
  Transmission Date: 20250408
  Serious: No
  Sender: PFIZER
  Company Number: US-PFIZER INC-PV202300092161

PATIENT
  Age: 72 Year
  Sex: Female

DRUGS (2)
  1. XELJANZ XR [Suspect]
     Active Substance: TOFACITINIB CITRATE
  2. TRIAMTERENE [Concomitant]
     Active Substance: TRIAMTERENE

REACTIONS (6)
  - Illness [Unknown]
  - Dizziness [Unknown]
  - Rash [Unknown]
  - Blood cholesterol abnormal [Unknown]
  - Nasopharyngitis [Unknown]
  - Hypotension [Unknown]

NARRATIVE: CASE EVENT DATE: 20250201
